FAERS Safety Report 7435251-5 (Version None)
Quarter: 2011Q2

REPORT INFORMATION
  Report Type: 
  Country: None (occurrence: None)
  Receive Date: 20110425
  Receipt Date: 20110415
  Transmission Date: 20111010
  Serious: Yes (Hospitalization)
  Sender: FDA-Public Use
  Company Number: US-ASTRAZENECA-2009UW07581

PATIENT
  Age: 55 Year
  Sex: Female

DRUGS (2)
  1. NEXIUM [Suspect]
     Route: 048
     Dates: start: 20070912
  2. SEROQUEL [Suspect]
     Route: 048
     Dates: start: 20070912

REACTIONS (3)
  - INFECTION [None]
  - ASTHMA [None]
  - DRUG EFFECT INCREASED [None]
